FAERS Safety Report 17415512 (Version 28)
Quarter: 2025Q2

REPORT INFORMATION
  Report Type: Report from Study
  Country: US (occurrence: US)
  Receive Date: 20200213
  Receipt Date: 20250609
  Transmission Date: 20250717
  Serious: Yes (Hospitalization, Other)
  Sender: TAKEDA
  Company Number: US-SHIRE-US202005065

PATIENT
  Age: 81 Year
  Sex: Female
  Weight: 86 kg

DRUGS (59)
  1. HUMAN IMMUNOGLOBULIN G [Suspect]
     Active Substance: HUMAN IMMUNOGLOBULIN G
     Indication: Immunodeficiency common variable
     Dosage: 60 GRAM, Q4WEEKS
     Dates: start: 20160902
  2. HUMAN IMMUNOGLOBULIN G [Suspect]
     Active Substance: HUMAN IMMUNOGLOBULIN G
     Dosage: 60 GRAM, Q4WEEKS
  3. HUMAN IMMUNOGLOBULIN G [Suspect]
     Active Substance: HUMAN IMMUNOGLOBULIN G
     Dosage: 60 GRAM, Q4WEEKS
  4. KEFLEX [Suspect]
     Active Substance: CEPHALEXIN
     Indication: Product used for unknown indication
  5. DIPHENHYDRAMINE [Concomitant]
     Active Substance: DIPHENHYDRAMINE
  6. CARVEDILOL [Concomitant]
     Active Substance: CARVEDILOL
  7. MAGNESIUM OXIDE [Concomitant]
     Active Substance: MAGNESIUM OXIDE
  8. LIDODERM [Concomitant]
     Active Substance: LIDOCAINE
  9. METOPROLOL SUCCINATE [Concomitant]
     Active Substance: METOPROLOL SUCCINATE
  10. EPINEPHRINE [Concomitant]
     Active Substance: EPINEPHRINE
  11. SODIUM CHLORIDE [Concomitant]
     Active Substance: SODIUM CHLORIDE
  12. DEXILANT [Concomitant]
     Active Substance: DEXLANSOPRAZOLE
  13. STIOLTO RESPIMAT [Concomitant]
     Active Substance: OLODATEROL HYDROCHLORIDE\TIOTROPIUM BROMIDE MONOHYDRATE
  14. LISINOPRIL [Concomitant]
     Active Substance: LISINOPRIL
  15. ROPINIROLE HYDROCHLORIDE [Concomitant]
     Active Substance: ROPINIROLE HYDROCHLORIDE
  16. FUROSEMIDE [Concomitant]
     Active Substance: FUROSEMIDE
  17. LEVOTHYROXINE SODIUM [Concomitant]
     Active Substance: LEVOTHYROXINE SODIUM
  18. TRAMADOL HCL [Concomitant]
     Active Substance: TRAMADOL HYDROCHLORIDE
  19. METFORMIN [Concomitant]
     Active Substance: METFORMIN HYDROCHLORIDE
  20. ACETAMINOPHEN [Concomitant]
     Active Substance: ACETAMINOPHEN
  21. SODIUM CHLORIDE [Concomitant]
     Active Substance: SODIUM CHLORIDE
  22. ASPIRIN [Concomitant]
     Active Substance: ASPIRIN
  23. OXYGEN [Concomitant]
     Active Substance: OXYGEN
  24. FLUTICASONE [Concomitant]
     Active Substance: FLUTICASONE
  25. WELLBUTRIN XL [Concomitant]
     Active Substance: BUPROPION HYDROCHLORIDE
  26. VITAMIN E [Concomitant]
     Active Substance: .ALPHA.-TOCOPHEROL
  27. METAXALONE [Concomitant]
     Active Substance: METAXALONE
  28. ACYCLOVIR [Concomitant]
     Active Substance: ACYCLOVIR
  29. METHOCARBAMOL [Concomitant]
     Active Substance: METHOCARBAMOL
  30. VITAMIN B12 [Concomitant]
     Active Substance: CYANOCOBALAMIN
  31. MAGNESIUM [Concomitant]
     Active Substance: MAGNESIUM
  32. VITAMIN D3 [Concomitant]
     Active Substance: CHOLECALCIFEROL
  33. HYDROCHLOROTHIAZIDE\LISINOPRIL [Concomitant]
     Active Substance: HYDROCHLOROTHIAZIDE\LISINOPRIL
  34. SUCRALFATE [Concomitant]
     Active Substance: SUCRALFATE
  35. HYDROCHLOROTHIAZIDE [Concomitant]
     Active Substance: HYDROCHLOROTHIAZIDE
  36. PROTONIS [Concomitant]
  37. RESTASIS [Concomitant]
     Active Substance: CYCLOSPORINE
  38. GEMFIBROZIL [Concomitant]
     Active Substance: GEMFIBROZIL
  39. VENTOLIN HFA [Concomitant]
     Active Substance: ALBUTEROL SULFATE
  40. ADVAIR HFA [Concomitant]
     Active Substance: FLUTICASONE PROPIONATE\SALMETEROL XINAFOATE
  41. XYZAL [Concomitant]
     Active Substance: LEVOCETIRIZINE DIHYDROCHLORIDE
  42. PROTONIX [Concomitant]
     Active Substance: PANTOPRAZOLE SODIUM
  43. SOTALOL [Concomitant]
     Active Substance: SOTALOL
  44. LIPITOR [Concomitant]
     Active Substance: ATORVASTATIN CALCIUM
  45. FERROUS SULFATE [Concomitant]
     Active Substance: FERROUS SULFATE
  46. PEPCID [Concomitant]
     Active Substance: FAMOTIDINE
  47. PROMETHAZINE HYDROCHLORIDE [Concomitant]
     Active Substance: PROMETHAZINE HYDROCHLORIDE
  48. METFORMIN HYDROCHLORIDE [Concomitant]
     Active Substance: METFORMIN HYDROCHLORIDE
  49. VITAMIN B [Concomitant]
     Active Substance: VITAMIN B
  50. VITAMIN D3 [Concomitant]
     Active Substance: CHOLECALCIFEROL
  51. HYDROCHLOROTHIAZIDE [Concomitant]
     Active Substance: HYDROCHLOROTHIAZIDE
  52. ANORO ELLIPTA [Concomitant]
     Active Substance: UMECLIDINIUM BROMIDE\VILANTEROL TRIFENATATE
  53. ALBUTEROL SULFATE [Concomitant]
     Active Substance: ALBUTEROL SULFATE
  54. DICLOFENAC POTASSIUM [Concomitant]
     Active Substance: DICLOFENAC POTASSIUM
  55. SINEMET [Concomitant]
     Active Substance: CARBIDOPA\LEVODOPA
  56. SPIRONOLACTONE [Concomitant]
     Active Substance: SPIRONOLACTONE
  57. ALBUTEROL SULFATE [Concomitant]
     Active Substance: ALBUTEROL SULFATE
  58. DIPHENHYDRAMINE HYDROCHLORIDE [Concomitant]
     Active Substance: DIPHENHYDRAMINE HYDROCHLORIDE
  59. ELIQUIS [Concomitant]
     Active Substance: APIXABAN

REACTIONS (22)
  - Atrial fibrillation [Unknown]
  - Cellulitis [Unknown]
  - Cardiac disorder [Unknown]
  - Fall [Unknown]
  - Urinary tract infection [Unknown]
  - Complication associated with device [Unknown]
  - Loss of consciousness [Unknown]
  - Cardiac failure acute [Unknown]
  - Deep vein thrombosis [Unknown]
  - Infusion related reaction [Unknown]
  - Multiple allergies [Unknown]
  - Skin laceration [Unknown]
  - Infusion site discharge [Unknown]
  - Drug hypersensitivity [Unknown]
  - Arthritis [Unknown]
  - Device occlusion [Unknown]
  - Back disorder [Unknown]
  - Infusion site extravasation [Unknown]
  - Oedema peripheral [Unknown]
  - Chills [Recovered/Resolved]
  - Nausea [Recovered/Resolved]
  - Fatigue [Unknown]

NARRATIVE: CASE EVENT DATE: 20240530
